FAERS Safety Report 24433087 (Version 3)
Quarter: 2025Q2

REPORT INFORMATION
  Report Type: Report from Study
  Country: CO (occurrence: CO)
  Receive Date: 20241014
  Receipt Date: 20250409
  Transmission Date: 20250717
  Serious: Yes (Other)
  Sender: NOVARTIS
  Company Number: CO-002147023-NVSC2024CO196626

PATIENT
  Age: 49 Year
  Sex: Male
  Weight: 78 kg

DRUGS (7)
  1. ELTROMBOPAG OLAMINE [Suspect]
     Active Substance: ELTROMBOPAG OLAMINE
     Indication: Bone marrow failure
     Dosage: 150 MG, QD
     Route: 048
     Dates: start: 20210705
  2. ELTROMBOPAG OLAMINE [Suspect]
     Active Substance: ELTROMBOPAG OLAMINE
     Dosage: 50 MG, Q24H
     Route: 065
  3. ELTROMBOPAG OLAMINE [Suspect]
     Active Substance: ELTROMBOPAG OLAMINE
     Dosage: 50 MG, Q48H
     Route: 065
  4. ELTROMBOPAG OLAMINE [Suspect]
     Active Substance: ELTROMBOPAG OLAMINE
     Route: 065
     Dates: end: 202403
  5. ELTROMBOPAG OLAMINE [Suspect]
     Active Substance: ELTROMBOPAG OLAMINE
     Dosage: 25 MG, QD
     Route: 048
     Dates: start: 202411
  6. LOSARTAN [Concomitant]
     Active Substance: LOSARTAN
     Indication: Hypertension
     Dosage: UNK, QD (7 YEARS AGO)
     Route: 048
  7. LOSARTAN [Concomitant]
     Active Substance: LOSARTAN
     Dosage: 1 DOSAGE FORM, QD (4 YEARS AGO) TABLET
     Route: 065

REACTIONS (5)
  - Bone marrow failure [Recovered/Resolved]
  - Peripheral vein thrombosis [Recovered/Resolved]
  - Platelet count abnormal [Recovered/Resolved]
  - Inappropriate schedule of product administration [Unknown]
  - Platelet count increased [Recovered/Resolved]

NARRATIVE: CASE EVENT DATE: 20240301
